APPROVED DRUG PRODUCT: TESTOSTERONE CYPIONATE
Active Ingredient: TESTOSTERONE CYPIONATE
Strength: 200MG/ML
Dosage Form/Route: INJECTABLE;INJECTION
Application: A215351 | Product #002 | TE Code: AO
Applicant: XIROMED PHARMA ESPANA SL
Approved: Apr 13, 2023 | RLD: No | RS: No | Type: RX